FAERS Safety Report 16088199 (Version 5)
Quarter: 2023Q2

REPORT INFORMATION
  Report Type: Report from Study
  Country: DE (occurrence: None)
  Receive Date: 20190319
  Receipt Date: 20230614
  Transmission Date: 20230722
  Serious: Yes (Hospitalization)
  Sender: FDA-Public Use
  Company Number: DE-ROCHE-2278733

PATIENT
  Age: 42 Year
  Sex: Female
  Weight: 67.5 kg

DRUGS (23)
  1. TRASTUZUMAB [Suspect]
     Active Substance: TRASTUZUMAB
     Indication: HER2 positive breast cancer
     Dosage: START DATE OF MOST RECENT DOSE OF STUDY DRUG PRIOR TO SAE ON 01-MAR-2019 11:00 AM TO 12:30 PM
     Route: 041
     Dates: start: 20190301
  2. PERTUZUMAB [Suspect]
     Active Substance: PERTUZUMAB
     Indication: HER2 positive breast cancer
     Dosage: START DATE OF MOST RECENT DOSE 840 MG OF STUDY DRUG PRIOR TO SAE ON 01/MAR/2019
     Route: 042
     Dates: start: 20190301
  3. DOXORUBICIN [Suspect]
     Active Substance: DOXORUBICIN
     Indication: HER2 positive breast cancer
     Dosage: ON 01/FEB/2019, RECEIVED 84.48 MG MOST RECENT DOSE OF DOXORUBICIN
     Route: 042
     Dates: start: 20181204
  4. CYCLOPHOSPHAMIDE [Suspect]
     Active Substance: CYCLOPHOSPHAMIDE
     Indication: HER2 positive breast cancer
     Dosage: ON 01/FEB/2019, RECEIVED 844.8 MG MOST RECENT DOSE OF CYCLOPHOSAMIDE
     Route: 042
     Dates: start: 20181204
  5. PACLITAXEL [Suspect]
     Active Substance: PACLITAXEL
     Indication: HER2 positive breast cancer
     Dosage: ON 01/MAR/2019, RECEIVED 140.8 MG MOST RECENT DOSE AT 13.40 TO 14.40
     Route: 042
     Dates: start: 20190301
  6. LEVOTHYROXINE SODIUM [Concomitant]
     Active Substance: LEVOTHYROXINE SODIUM
     Indication: Hypothyroidism
     Route: 048
     Dates: start: 20181203
  7. PANTOZOL [Concomitant]
     Active Substance: PANTOPRAZOLE SODIUM
     Indication: Prophylaxis
     Route: 048
     Dates: start: 20181204
  8. DEXAMETHASONE [Concomitant]
     Active Substance: DEXAMETHASONE
     Route: 048
     Dates: start: 20181204, end: 20190405
  9. MESNA [Concomitant]
     Active Substance: MESNA
     Indication: Prophylaxis
     Route: 042
     Dates: start: 20181204, end: 20190201
  10. MESNA [Concomitant]
     Active Substance: MESNA
     Route: 048
     Dates: start: 20181204, end: 20190201
  11. PEGFILGRASTIM [Concomitant]
     Active Substance: PEGFILGRASTIM
     Route: 058
     Dates: start: 20181205, end: 20190202
  12. CLEMASTINE [Concomitant]
     Active Substance: CLEMASTINE
     Route: 042
     Dates: start: 20190301, end: 20190405
  13. RANITIDINE [Concomitant]
     Active Substance: RANITIDINE
     Route: 042
     Dates: start: 20190301, end: 20190405
  14. AKYNZEO [Concomitant]
     Route: 048
     Dates: start: 20181204, end: 20190201
  15. METOCLOPRAMIDE [Concomitant]
     Active Substance: METOCLOPRAMIDE
     Route: 048
     Dates: start: 20181204
  16. LOPERAMIDE [Concomitant]
     Active Substance: LOPERAMIDE
     Route: 048
     Dates: start: 20181204
  17. AMOXICILLIN\CLAVULANATE POTASSIUM [Concomitant]
     Active Substance: AMOXICILLIN\CLAVULANATE POTASSIUM
     Indication: Febrile neutropenia
     Route: 048
     Dates: start: 20190207, end: 20190207
  18. CIPROFLOXACIN [Concomitant]
     Active Substance: CIPROFLOXACIN
     Indication: Febrile neutropenia
     Route: 048
     Dates: start: 20190207, end: 20190207
  19. CIPROFLOXACIN [Concomitant]
     Active Substance: CIPROFLOXACIN
     Route: 042
     Dates: start: 20190207, end: 20190211
  20. UNACID [Concomitant]
     Indication: Febrile neutropenia
     Route: 042
     Dates: start: 20190207, end: 20190211
  21. ACETAMINOPHEN\CODEINE PHOSPHATE [Concomitant]
     Active Substance: ACETAMINOPHEN\CODEINE PHOSPHATE
     Indication: Cough
     Dosage: 10 GTT
     Route: 048
     Dates: start: 20190209, end: 20190211
  22. EMSER [Concomitant]
     Indication: Cough
     Route: 055
     Dates: start: 20190208, end: 20190212
  23. ACETYLCYSTEINE [Concomitant]
     Active Substance: ACETYLCYSTEINE
     Indication: Cough
     Route: 048
     Dates: start: 20190208, end: 20200212

REACTIONS (1)
  - Pulmonary embolism [Recovered/Resolved]

NARRATIVE: CASE EVENT DATE: 20190301
